FAERS Safety Report 23260528 (Version 1)
Quarter: 2023Q4

REPORT INFORMATION
  Report Type: Spontaneous
  Country: US (occurrence: US)
  Receive Date: 20231205
  Receipt Date: 20231205
  Transmission Date: 20240110
  Serious: No
  Sender: FDA-Public Use
  Company Number: US-ABBVIE-5520037

PATIENT
  Age: 37 Year

DRUGS (1)
  1. LILETTA [Suspect]
     Active Substance: LEVONORGESTREL
     Indication: Product used for unknown indication
     Route: 065
     Dates: start: 20231116

REACTIONS (3)
  - Complication of device insertion [Unknown]
  - Device dislocation [Unknown]
  - Procedural pain [Unknown]

NARRATIVE: CASE EVENT DATE: 20231116
